FAERS Safety Report 5739749-7 (Version None)
Quarter: 2008Q2

REPORT INFORMATION
  Report Type: 
  Country: None (occurrence: None)
  Receive Date: 20080512
  Receipt Date: 20080512
  Transmission Date: 20081010
  Serious: Yes (Hospitalization)
  Sender: FDA-Public Use
  Company Number: None

PATIENT
  Age: 71 Year
  Sex: Male

DRUGS (2)
  1. FUROSEMIDE [Suspect]
     Indication: CARDIAC FAILURE CONGESTIVE
     Dosage: 160MG BID PO
     Route: 048
  2. BENAZEPRIL HCL AND HYDROCHLOROTHIAZIDE [Suspect]
     Indication: CARDIAC FAILURE CONGESTIVE
     Dosage: 20/12.5 DAILY PO
     Route: 048

REACTIONS (7)
  - CARDIAC FAILURE [None]
  - HYPOTENSION [None]
  - HYPOVOLAEMIA [None]
  - MENTAL STATUS CHANGES [None]
  - NEPHROPATHY [None]
  - RENAL FAILURE ACUTE [None]
  - WEIGHT INCREASED [None]
